FAERS Safety Report 15647471 (Version 1)
Quarter: 2018Q4

REPORT INFORMATION
  Report Type: Spontaneous
  Country: US (occurrence: US)
  Receive Date: 20181122
  Receipt Date: 20181122
  Transmission Date: 20190205
  Serious: Yes (Hospitalization)
  Sender: FDA-Public Use
  Company Number: US-SERB S.A.S.-2059193

PATIENT
  Age: 54 Year
  Sex: Male

DRUGS (4)
  1. CYANOKIT [Suspect]
     Active Substance: HYDROXOCOBALAMIN
     Indication: RESPIRATORY FUME INHALATION DISORDER
     Route: 065
  2. EPOPROSTENOL. [Concomitant]
     Active Substance: EPOPROSTENOL
  3. HYDROCORTISONE. [Concomitant]
     Active Substance: HYDROCORTISONE
     Route: 042
  4. ACETYLCYSTEINE. [Concomitant]
     Active Substance: ACETYLCYSTEINE
     Route: 042

REACTIONS (1)
  - Drug ineffective [Recovered/Resolved]
